FAERS Safety Report 23319705 (Version 7)
Quarter: 2025Q3

REPORT INFORMATION
  Report Type: Spontaneous
  Country: JP (occurrence: JP)
  Receive Date: 20231220
  Receipt Date: 20250912
  Transmission Date: 20251021
  Serious: Yes (Death, Life-Threatening, Hospitalization, Other)
  Sender: BRISTOL-MYERS SQUIBB COMPANY
  Company Number: JP-BRISTOL-MYERS SQUIBB COMPANY-2023-178994

PATIENT
  Age: 73 Year
  Sex: Male

DRUGS (21)
  1. YERVOY [Suspect]
     Active Substance: IPILIMUMAB
     Indication: Oesophageal carcinoma recurrent
     Dates: start: 20231024, end: 20231024
  2. YERVOY [Suspect]
     Active Substance: IPILIMUMAB
     Indication: Oesophageal carcinoma
  3. OPDIVO [Suspect]
     Active Substance: NIVOLUMAB
     Indication: Oesophageal carcinoma recurrent
     Dates: start: 20231024, end: 20231024
  4. OPDIVO [Suspect]
     Active Substance: NIVOLUMAB
     Indication: Oesophageal carcinoma
  5. PIMOBENDAN [Concomitant]
     Active Substance: PIMOBENDAN
     Indication: Product used for unknown indication
     Dosage: AFTER BREAKFAST AND SUPPER
  6. BISOPROLOL FUMARATE [Concomitant]
     Active Substance: BISOPROLOL FUMARATE
     Indication: Product used for unknown indication
     Dosage: AFTER BREAKFAST
  7. DAPAGLIFLOZIN [Concomitant]
     Active Substance: DAPAGLIFLOZIN
     Indication: Chronic kidney disease
     Dosage: AFTER BREAKFAST
  8. NICORANDIL [Concomitant]
     Active Substance: NICORANDIL
     Indication: Product used for unknown indication
     Dosage: AFTER BREAKFAST AND SUPPER
  9. ENTRESTO [Concomitant]
     Active Substance: SACUBITRIL\VALSARTAN
     Indication: Product used for unknown indication
     Dosage: AFTER BREAKFAST AND SUPPER
  10. CLOPIDOGREL [Concomitant]
     Active Substance: CLOPIDOGREL BISULFATE
     Indication: Product used for unknown indication
     Dosage: AFTER BREAKFAST
  11. VONOPRAZAN FUMARATE [Concomitant]
     Active Substance: VONOPRAZAN FUMARATE
     Indication: Product used for unknown indication
     Dosage: AFTER BREAKFAST
  12. ROSUVASTATIN [Concomitant]
     Active Substance: ROSUVASTATIN
     Indication: Product used for unknown indication
     Dosage: AFTER BREAKFAST
  13. FUROSEMIDE [Concomitant]
     Active Substance: FUROSEMIDE
     Indication: Product used for unknown indication
     Dosage: AFTER BREAKFAST
  14. SPIRONOLACTONE [Concomitant]
     Active Substance: SPIRONOLACTONE
     Indication: Product used for unknown indication
     Dosage: AFTER BREAKFAST
  15. SAMSCA [Concomitant]
     Active Substance: TOLVAPTAN
     Indication: Product used for unknown indication
     Dosage: AFTER BREAKFAST
  16. TORSEMIDE [Concomitant]
     Active Substance: TORSEMIDE
     Indication: Product used for unknown indication
     Dosage: AFTER BREAKFAST
  17. LUNESTA [Concomitant]
     Active Substance: ESZOPICLONE
     Indication: Product used for unknown indication
     Dosage: BEFORE SLEEPING
  18. LYRICA [Concomitant]
     Active Substance: PREGABALIN
     Indication: Product used for unknown indication
     Dosage: AFTER BREAKFAST AND SUPPER
  19. CODEINE PHOSPHATE [Concomitant]
     Active Substance: CODEINE PHOSPHATE
     Indication: Product used for unknown indication
     Dosage: AFTER BREAKFAST AND SUPPER
  20. ELOBIXIBAT [Concomitant]
     Active Substance: ELOBIXIBAT
     Indication: Product used for unknown indication
     Dosage: BEFORE BREAKFAST
  21. VALSARTAN [Concomitant]
     Active Substance: VALSARTAN
     Indication: Product used for unknown indication

REACTIONS (1)
  - Cytokine release syndrome [Fatal]

NARRATIVE: CASE EVENT DATE: 20231026
